FAERS Safety Report 13267427 (Version 1)
Quarter: 2017Q1

REPORT INFORMATION
  Report Type: Spontaneous
  Country: US (occurrence: US)
  Receive Date: 20170223
  Receipt Date: 20170223
  Transmission Date: 20170428
  Serious: No
  Sender: FDA-Public Use
  Company Number: None

PATIENT
  Age: 20 Year
  Sex: Female

DRUGS (1)
  1. TETRABENAZINE 12.5MG SUN [Suspect]
     Active Substance: TETRABENAZINE
     Indication: TOURETTE^S DISORDER
     Route: 048
     Dates: start: 20161109

REACTIONS (6)
  - Tic [None]
  - Eye pain [None]
  - Eye movement disorder [None]
  - Visual impairment [None]
  - Movement disorder [None]
  - Migraine [None]

NARRATIVE: CASE EVENT DATE: 20170110
